FAERS Safety Report 7235273-3 (Version None)
Quarter: 2011Q1

REPORT INFORMATION
  Report Type: 
  Country: None (occurrence: None)
  Receive Date: 20110120
  Receipt Date: 20110112
  Transmission Date: 20110831
  Serious: Yes (Other)
  Sender: FDA-Public Use
  Company Number: RU-BAYER-201041412GPV

PATIENT
  Age: 39 Year
  Sex: Female

DRUGS (1)
  1. AVELOX [Suspect]
     Indication: PELVIC INFLAMMATORY DISEASE
     Route: 048
     Dates: start: 20100916, end: 20100919

REACTIONS (4)
  - DYSPNOEA [None]
  - CHEST PAIN [None]
  - TACHYCARDIA [None]
  - APNOEA [None]
